FAERS Safety Report 5623896-4 (Version None)
Quarter: 2008Q1

REPORT INFORMATION
  Report Type: 
  Country: None (occurrence: None)
  Receive Date: 20080207
  Receipt Date: 20080122
  Transmission Date: 20080703
  Serious: Yes (Death, Hospitalization, Disabling)
  Sender: FDA-Public Use
  Company Number: 2007JP005691

PATIENT
  Age: 86 Year
  Sex: Male
  Weight: 46 kg

DRUGS (10)
  1. FUNGUARD(MICAFUNGIN) INJECTION [Suspect]
     Indication: ENDOCARDITIS
     Dosage: 50 MG, IUD/QD, IV DRIP; 100 MG UID/QD, IV DRIP; 50 MG UID/QD, IV DRIP
     Route: 041
     Dates: start: 20071130, end: 20071203
  2. FUNGUARD(MICAFUNGIN) INJECTION [Suspect]
     Indication: ENDOCARDITIS
     Dosage: 50 MG, IUD/QD, IV DRIP; 100 MG UID/QD, IV DRIP; 50 MG UID/QD, IV DRIP
     Route: 041
     Dates: start: 20071204, end: 20071217
  3. FUNGUARD(MICAFUNGIN) INJECTION [Suspect]
     Indication: ENDOCARDITIS
     Dosage: 50 MG, IUD/QD, IV DRIP; 100 MG UID/QD, IV DRIP; 50 MG UID/QD, IV DRIP
     Route: 041
     Dates: start: 20071218, end: 20080120
  4. VANCOMYCIN [Suspect]
     Indication: ENDOCARDITIS
     Dosage: 1 G UID/QD, IV DRIP
     Route: 041
     Dates: start: 20071127, end: 20071203
  5. CIPROXAN(CIPROFLOXACIN HYDROCHLORIDE) INJECTION [Suspect]
     Indication: ENDOCARDITIS
     Dosage: 150 MG, BID, IV DRIP
     Route: 041
     Dates: start: 20071129, end: 20071204
  6. DOXAZOSIN MESYLATE [Concomitant]
  7. TENORMIN [Concomitant]
  8. TENORMIN [Concomitant]
  9. RABEPRAZOLE SODIUM [Concomitant]
  10. FERROMIA (FERROUS CITRATE) [Concomitant]

REACTIONS (19)
  - ANAEMIA [None]
  - BLOOD CULTURE POSITIVE [None]
  - CANDIDIASIS [None]
  - CARDIAC DISORDER [None]
  - DEHYDRATION [None]
  - DISSEMINATED INTRAVASCULAR COAGULATION [None]
  - ENDOCARDITIS [None]
  - EYE INFECTION FUNGAL [None]
  - GASTRIC ULCER [None]
  - HEPATIC FUNCTION ABNORMAL [None]
  - HYPERTENSION [None]
  - ILL-DEFINED DISORDER [None]
  - MULTI-ORGAN FAILURE [None]
  - NO THERAPEUTIC RESPONSE [None]
  - RASH [None]
  - RENAL FAILURE ACUTE [None]
  - SEPSIS [None]
  - THROMBOCYTOPENIA [None]
  - THROMBOSIS [None]
